FAERS Safety Report 7655615-4 (Version None)
Quarter: 2011Q3

REPORT INFORMATION
  Report Type: 
  Country: None (occurrence: None)
  Receive Date: 20110804
  Receipt Date: 20110725
  Transmission Date: 20111222
  Serious: Yes (Death, Hospitalization)
  Sender: FDA-Public Use
  Company Number: NL-BRISTOL-MYERS SQUIBB COMPANY-15944515

PATIENT
  Age: 78 Year
  Sex: Female

DRUGS (1)
  1. METFORMIN HCL [Suspect]
     Indication: TYPE 2 DIABETES MELLITUS
     Dosage: 1 DOSAGE FORM = 850-2550 MG/DAY

REACTIONS (5)
  - DEHYDRATION [None]
  - SHOCK [None]
  - LACTIC ACIDOSIS [None]
  - BRADYCARDIA [None]
  - RENAL FAILURE ACUTE [None]
